FAERS Safety Report 18285766 (Version 1)
Quarter: 2020Q3

REPORT INFORMATION
  Report Type: Spontaneous
  Country: FR (occurrence: FR)
  Receive Date: 20200919
  Receipt Date: 20200919
  Transmission Date: 20201103
  Serious: Yes (Life-Threatening)
  Sender: FDA-Public Use
  Company Number: FR-ACCORD-201608

PATIENT
  Age: 54 Year
  Sex: Female

DRUGS (4)
  1. MYCOPHENOLIC ACID. [Suspect]
     Active Substance: MYCOPHENOLIC ACID
     Indication: LIVER TRANSPLANT
     Route: 048
     Dates: start: 20200530, end: 20200819
  2. PREDNISOLONE. [Concomitant]
     Active Substance: PREDNISOLONE
  3. TACROLIMUS. [Suspect]
     Active Substance: TACROLIMUS
     Indication: LIVER TRANSPLANT
     Route: 048
     Dates: start: 20200530, end: 20200819
  4. CHOLURSO [Suspect]
     Active Substance: URSODIOL
     Indication: CHOLESTASIS
     Dosage: STRENGTH: 500 MG
     Route: 048
     Dates: end: 20200819

REACTIONS (5)
  - Vomiting [Recovered/Resolved]
  - Pyelonephritis [Recovering/Resolving]
  - Acute kidney injury [Recovered/Resolved]
  - Anaemia [Recovering/Resolving]
  - Agranulocytosis [Recovered/Resolved]

NARRATIVE: CASE EVENT DATE: 20200812
